FAERS Safety Report 6232312-3 (Version None)
Quarter: 2009Q2

REPORT INFORMATION
  Report Type: 
  Country: None (occurrence: None)
  Receive Date: 20090616
  Receipt Date: 20090616
  Transmission Date: 20091009
  Serious: No
  Sender: FDA-Public Use
  Company Number: None

PATIENT
  Age: 30 Year
  Sex: Female
  Weight: 67.1324 kg

DRUGS (2)
  1. FEXOFENADINE [Suspect]
     Indication: RHINITIS ALLERGIC
     Dosage: ONCE QD PO
     Route: 048
     Dates: start: 20061121
  2. FEXOFENADINE [Suspect]
     Indication: RHINITIS ALLERGIC
     Dosage: ONCE QD PO
     Route: 048
     Dates: start: 20090518

REACTIONS (7)
  - CONDITION AGGRAVATED [None]
  - DRUG INEFFECTIVE [None]
  - EAR PAIN [None]
  - EYE PRURITUS [None]
  - FATIGUE [None]
  - OROPHARYNGEAL PAIN [None]
  - PRODUCT SUBSTITUTION ISSUE [None]
